FAERS Safety Report 4731648-2 (Version None)
Quarter: 2005Q3

REPORT INFORMATION
  Report Type: 
  Country: None (occurrence: None)
  Receive Date: 20050802
  Receipt Date: 20050721
  Transmission Date: 20060218
  Serious: Yes (Other)
  Sender: FDA-Public Use
  Company Number: DE-JNJFOC-20050704690

PATIENT
  Age: 63 Year
  Sex: Female

DRUGS (5)
  1. HALDOL [Suspect]
     Indication: DRUG USE FOR UNKNOWN INDICATION
     Route: 048
     Dates: start: 20050104, end: 20050106
  2. TRIMIPRAMINE MALEATE [Suspect]
     Indication: DRUG USE FOR UNKNOWN INDICATION
     Route: 048
     Dates: end: 20050217
  3. LORAZEPAM [Concomitant]
     Route: 048
     Dates: end: 20050204
  4. ZYPREXA [Concomitant]
     Route: 048
  5. SOLIAN [Concomitant]
     Route: 048

REACTIONS (1)
  - EOSINOPHILIA [None]
